FAERS Safety Report 4604856-9 (Version None)
Quarter: 2005Q2

REPORT INFORMATION
  Report Type: 
  Country: None (occurrence: None)
  Receive Date: 20050217
  Receipt Date: 20050113
  Transmission Date: 20051028
  Serious: No
  Sender: FDA-Public Use
  Company Number: S05-USA-00191-01

PATIENT
  Age: 65 Year
  Sex: Female

DRUGS (1)
  1. NAMENDA [Suspect]

REACTIONS (3)
  - DIZZINESS [None]
  - HEADACHE [None]
  - STOMACH DISCOMFORT [None]
